FAERS Safety Report 4546757-0 (Version None)
Quarter: 2005Q1

REPORT INFORMATION
  Report Type: 
  Country: None (occurrence: None)
  Receive Date: 20050106
  Receipt Date: 20041229
  Transmission Date: 20050727
  Serious: Yes (Hospitalization)
  Sender: FDA-Public Use
  Company Number: US-ABBOTT-04P-163-0285033-00

PATIENT
  Sex: Female
  Weight: 80.812 kg

DRUGS (16)
  1. HUMIRA [Suspect]
     Indication: RHEUMATOID ARTHRITIS
     Route: 058
     Dates: start: 20040201, end: 20040901
  2. HUMIRA [Suspect]
     Route: 058
     Dates: start: 20041225
  3. PRAVASTATIN SODIUM [Concomitant]
     Indication: BLOOD CHOLESTEROL INCREASED
     Route: 048
     Dates: start: 20040201, end: 20041001
  4. ATORVASTATIN [Concomitant]
     Indication: BLOOD CHOLESTEROL INCREASED
     Route: 048
     Dates: start: 20041001
  5. IRON [Concomitant]
     Indication: ANAEMIA
     Route: 048
     Dates: start: 20040201, end: 20040301
  6. CYANOCOBALAMIN [Concomitant]
     Indication: DRUG USE FOR UNKNOWN INDICATION
     Route: 050
     Dates: start: 20040201
  7. PROMETHAZINE [Concomitant]
     Indication: GASTRIC DISORDER
     Route: 048
     Dates: start: 20040101
  8. ATENOLOL [Concomitant]
     Indication: BLOOD PRESSURE INCREASED
     Route: 048
     Dates: start: 20030101
  9. MULTI-VITAMINS [Concomitant]
     Indication: VITAMIN SUPPLEMENTATION
     Route: 048
     Dates: start: 20040201
  10. ALPRAZOLAM [Concomitant]
     Indication: DRUG USE FOR UNKNOWN INDICATION
     Route: 048
  11. POTASSIUM [Concomitant]
     Indication: MINERAL SUPPLEMENTATION
     Route: 048
     Dates: start: 20020101
  12. FUROSEMIDE [Concomitant]
     Indication: WEIGHT INCREASED
     Route: 048
     Dates: start: 20020101
  13. ZOLPIDEM TARTRATE [Concomitant]
     Indication: SLEEP DISORDER
     Route: 048
     Dates: start: 20000101
  14. HYDROCODONE [Concomitant]
     Indication: ARTHRALGIA
     Route: 048
     Dates: start: 20030101
  15. PREDNISONE [Concomitant]
     Indication: RHEUMATOID ARTHRITIS
     Route: 048
  16. GLIPIZIDE [Concomitant]
     Indication: BLOOD GLUCOSE INCREASED
     Route: 048
     Dates: start: 20030101

REACTIONS (4)
  - CONDITION AGGRAVATED [None]
  - FALL [None]
  - TOE DEFORMITY [None]
  - WRIST FRACTURE [None]
